FAERS Safety Report 25368573 (Version 1)
Quarter: 2025Q2

REPORT INFORMATION
  Report Type: Spontaneous
  Country: DO (occurrence: DO)
  Receive Date: 20250528
  Receipt Date: 20250528
  Transmission Date: 20250716
  Serious: Yes (Death)
  Sender: PFIZER
  Company Number: DO-PFIZER INC-PV202500063743

PATIENT
  Age: 71 Year
  Sex: Female

DRUGS (1)
  1. IBRANCE [Suspect]
     Active Substance: PALBOCICLIB
     Dosage: 200 MG, 3X/DAY

REACTIONS (2)
  - Death [Fatal]
  - Product use issue [Unknown]
